FAERS Safety Report 4636344-8 (Version None)
Quarter: 2005Q2

REPORT INFORMATION
  Report Type: 
  Country: None (occurrence: None)
  Receive Date: 20050415
  Receipt Date: 20041206
  Transmission Date: 20051028
  Serious: No
  Sender: FDA-Public Use
  Company Number: US-BRISTOL-MYERS SQUIBB COMPANY-12788592

PATIENT
  Age: 78 Year
  Sex: Female
  Weight: 71 kg

DRUGS (4)
  1. CARBOPLATIN [Suspect]
     Indication: OVARIAN CANCER METASTATIC
     Route: 042
     Dates: start: 20041129, end: 20041129
  2. TAXOTERE [Concomitant]
     Indication: OVARIAN CANCER METASTATIC
     Route: 042
     Dates: start: 20041129, end: 20041129
  3. ZOFRAN [Concomitant]
  4. DECADRON [Concomitant]

REACTIONS (4)
  - CHILLS [None]
  - FLUSHING [None]
  - PRURITUS [None]
  - RASH [None]
